FAERS Safety Report 17270165 (Version 1)
Quarter: 2020Q1

REPORT INFORMATION
  Report Type: Spontaneous
  Country: US (occurrence: US)
  Receive Date: 20191223
  Receipt Date: 20191223
  Transmission Date: 20200409
  Serious: Yes (Hospitalization)
  Sender: FDA-Public Use
  Company Number: None

PATIENT
  Age: 58 Year
  Sex: Male

DRUGS (1)
  1. IMMUCYST [Suspect]
     Active Substance: BACILLUS CALMETTE-GUERIN SUBSTRAIN CONNAUGHT LIVE ANTIGEN

REACTIONS (15)
  - Hyperhidrosis [None]
  - Pyrexia [None]
  - Haematuria [None]
  - Lymphopenia [None]
  - Hepatosplenomegaly [None]
  - Cholestasis [None]
  - Lung disorder [None]
  - Chills [None]
  - Jaundice [None]
  - Asthenia [None]
  - Weight decreased [None]
  - Granulomatous liver disease [None]
  - Interstitial lung disease [None]
  - Dyspnoea [None]
  - Inflammation [None]

NARRATIVE: CASE EVENT DATE: 20050117
